FAERS Safety Report 21675178 (Version 1)
Quarter: 2022Q4

REPORT INFORMATION
  Report Type: Spontaneous
  Country: BE (occurrence: BE)
  Receive Date: 20221202
  Receipt Date: 20221202
  Transmission Date: 20230113
  Serious: Yes (Death, Other)
  Sender: FDA-Public Use
  Company Number: BE-009507513-2211BEL005928

PATIENT
  Sex: Female

DRUGS (6)
  1. ZIRABEV [Suspect]
     Active Substance: BEVACIZUMAB-BVZR
     Indication: Glioblastoma
     Dosage: 1200 MG
  2. LOMUSTINE\PROCARBAZINE\VINCRISTINE [Suspect]
     Active Substance: LOMUSTINE\PROCARBAZINE\VINCRISTINE
     Indication: Glioblastoma
     Dosage: 2 CYCLES
     Dates: start: 202208
  3. LOMUSTINE\PROCARBAZINE\VINCRISTINE [Suspect]
     Active Substance: LOMUSTINE\PROCARBAZINE\VINCRISTINE
     Dosage: UNK
  4. TEMODAL [Suspect]
     Active Substance: TEMOZOLOMIDE
     Indication: Glioblastoma
     Dosage: 3 CYCLES
     Route: 048
     Dates: start: 202203
  5. TEMODAL [Suspect]
     Active Substance: TEMOZOLOMIDE
     Indication: Glioblastoma
     Dosage: 12 CYCLES
     Route: 048
     Dates: start: 2020, end: 2021
  6. TEMODAL [Suspect]
     Active Substance: TEMOZOLOMIDE
     Dosage: UNK
     Route: 048
     Dates: start: 2016

REACTIONS (5)
  - Death [Fatal]
  - Malignant neoplasm progression [Unknown]
  - Recurrent cancer [Unknown]
  - Glioblastoma [Unknown]
  - Off label use [Unknown]

NARRATIVE: CASE EVENT DATE: 20200101
